FAERS Safety Report 22318392 (Version 4)
Quarter: 2023Q2

REPORT INFORMATION
  Report Type: Spontaneous
  Country: US (occurrence: US)
  Receive Date: 20230515
  Receipt Date: 20230613
  Transmission Date: 20230722
  Serious: Yes (Other)
  Sender: FDA-Public Use
  Company Number: US-TOLMAR, INC.-23US040582

PATIENT
  Sex: Female

DRUGS (11)
  1. CALCIPOTRIENE AND BETAMETHASONE DIPROPIONATE [Suspect]
     Active Substance: BETAMETHASONE DIPROPIONATE\CALCIPOTRIENE
     Indication: Psoriasis
     Dosage: UNK
  2. KETOCONAZOLE [Suspect]
     Active Substance: KETOCONAZOLE
     Indication: Psoriasis
     Dosage: 2 % PERCENT
     Route: 003
  3. FOLIC ACID [Suspect]
     Active Substance: FOLIC ACID
     Indication: Psoriasis
     Dosage: 1 MILLIGRAM
     Route: 048
  4. PROMETHAZINE [Suspect]
     Active Substance: PROMETHAZINE HYDROCHLORIDE
     Indication: Psoriasis
     Dosage: 12.5 MILLIGRAM
     Route: 048
  5. TRETINOIN [Suspect]
     Active Substance: TRETINOIN
     Indication: Psoriasis
     Dosage: 0.05 % PERCENT
     Route: 003
  6. SIMVASTATIN [Suspect]
     Active Substance: SIMVASTATIN
     Indication: Psoriasis
     Dosage: 40 MILLIGRAM
     Route: 048
  7. IMITREX [Suspect]
     Active Substance: SUMATRIPTAN SUCCINATE
     Indication: Psoriasis
     Dosage: UNK
  8. METHOTREXATE [Suspect]
     Active Substance: METHOTREXATE
     Indication: Psoriasis
     Dosage: UNK
  9. METRONIDAZOLE [Suspect]
     Active Substance: METRONIDAZOLE
     Indication: Psoriasis
     Dosage: 500 MILLIGRAM
     Route: 048
  10. BETAMETHASONE [Suspect]
     Active Substance: BETAMETHASONE
     Indication: Psoriasis
     Dosage: 0.05 % PERCENT
     Route: 003
  11. COSENTYX [Suspect]
     Active Substance: SECUKINUMAB
     Indication: Psoriasis
     Dosage: UNK

REACTIONS (20)
  - Hepatic cirrhosis [Unknown]
  - Psoriasis [Unknown]
  - Solar lentigo [Unknown]
  - Alopecia [Unknown]
  - Abdominal discomfort [Recovered/Resolved]
  - Stomatitis [Unknown]
  - Nail disorder [Unknown]
  - Arthralgia [Unknown]
  - Seborrhoeic keratosis [Unknown]
  - Hypoacusis [Unknown]
  - Skin mass [Unknown]
  - Psoriasis [Unknown]
  - Dry skin [Unknown]
  - Pain [Unknown]
  - Headache [Unknown]
  - Acne [Unknown]
  - Ecchymosis [Unknown]
  - Nausea [Unknown]
  - Drug ineffective [Unknown]
  - Dermatitis [Unknown]
